FAERS Safety Report 15744351 (Version 1)
Quarter: 2018Q4

REPORT INFORMATION
  Report Type: Spontaneous
  Country: US (occurrence: US)
  Receive Date: 20181220
  Receipt Date: 20181220
  Transmission Date: 20190205
  Serious: Yes (Life-Threatening)
  Sender: FDA-Public Use
  Company Number: None

PATIENT
  Age: 25 Year
  Sex: Male
  Weight: 72 kg

DRUGS (1)
  1. MINOXIDIL 5% TROPICAL APPLICATION [Suspect]
     Active Substance: MINOXIDIL
     Indication: ALOPECIA

REACTIONS (5)
  - Blood pressure increased [None]
  - Cardiac failure [None]
  - Tachycardia [None]
  - Chest pain [None]
  - Fatigue [None]

NARRATIVE: CASE EVENT DATE: 20181016
